FAERS Safety Report 14663975 (Version 1)
Quarter: 2018Q1

REPORT INFORMATION
  Report Type: Spontaneous
  Country: US (occurrence: US)
  Receive Date: 20180321
  Receipt Date: 20180321
  Transmission Date: 20180509
  Serious: No
  Sender: FDA-Public Use
  Company Number: US-PFIZER INC-2018117549

PATIENT
  Sex: Female
  Weight: 45 kg

DRUGS (1)
  1. TETRACYCLINE HCL [Suspect]
     Active Substance: TETRACYCLINE HYDROCHLORIDE
     Dosage: UNK
     Route: 064

REACTIONS (6)
  - Tooth disorder [Unknown]
  - Maternal exposure during pregnancy [Unknown]
  - Mastication disorder [Unknown]
  - Tooth loss [Unknown]
  - Tooth discolouration [Unknown]
  - Tooth fracture [Unknown]
